FAERS Safety Report 18349172 (Version 3)
Quarter: 2021Q1

REPORT INFORMATION
  Report Type: Spontaneous
  Country: US (occurrence: US)
  Receive Date: 20201006
  Receipt Date: 20210223
  Transmission Date: 20210419
  Serious: No
  Sender: FDA-Public Use
  Company Number: US-LUNDBECK-DKLU3020666

PATIENT
  Age: 47 Year
  Sex: Female

DRUGS (1)
  1. VYEPTI [Suspect]
     Active Substance: EPTINEZUMAB-JJMR
     Indication: MIGRAINE
     Route: 042
     Dates: start: 20200826

REACTIONS (6)
  - Sneezing [Recovered/Resolved]
  - Flushing [Recovered/Resolved]
  - Rash [Recovered/Resolved]
  - Nasal congestion [Recovered/Resolved]
  - Dysphagia [Unknown]
  - Oropharyngeal pain [Recovered/Resolved]

NARRATIVE: CASE EVENT DATE: 20200826
